FAERS Safety Report 6940736-1 (Version None)
Quarter: 2010Q3

REPORT INFORMATION
  Report Type: 
  Country: None (occurrence: None)
  Receive Date: 20100825
  Receipt Date: 20100510
  Transmission Date: 20110219
  Serious: No
  Sender: FDA-Public Use
  Company Number: US-MYLANLABS-2010S1008438

PATIENT
  Age: 61 Year
  Sex: Female

DRUGS (4)
  1. MIRALAX [Suspect]
     Indication: CONSTIPATION
     Route: 048
     Dates: start: 20080101
  2. XANAX [Suspect]
  3. COUMADIN [Suspect]
  4. TEMAZEPAM [Suspect]

REACTIONS (4)
  - LOSS OF CONSCIOUSNESS [None]
  - NAUSEA [None]
  - PAIN [None]
  - RECTAL SPASM [None]
